FAERS Safety Report 5806353-1 (Version None)
Quarter: 2008Q3

REPORT INFORMATION
  Report Type: 
  Country: None (occurrence: None)
  Receive Date: 20080710
  Receipt Date: 20051209
  Transmission Date: 20090109
  Serious: Yes (Death)
  Sender: FDA-Public Use
  Company Number: IT-ROCHE-419005

PATIENT
  Sex: Male

DRUGS (2)
  1. PEGASYS [Suspect]
     Dosage: FORM: VIAL.
     Route: 058
     Dates: start: 20050423, end: 20050718
  2. RIBAVIRIN [Suspect]
     Route: 048
     Dates: start: 20050423, end: 20050718

REACTIONS (2)
  - BONE MARROW FAILURE [None]
  - PYREXIA [None]
